FAERS Safety Report 13498709 (Version 1)
Quarter: 2017Q2

REPORT INFORMATION
  Report Type: Spontaneous
  Country: US (occurrence: US)
  Receive Date: 20170428
  Receipt Date: 20170428
  Transmission Date: 20170830
  Serious: Yes (Hospitalization)
  Sender: FDA-Public Use
  Company Number: None

PATIENT
  Age: 53 Year
  Sex: Female
  Weight: 60.43 kg

DRUGS (2)
  1. GEMCITABINE [Suspect]
     Active Substance: GEMCITABINE\GEMCITABINE HYDROCHLORIDE
     Indication: PANCREATIC CARCINOMA
     Route: 042
     Dates: start: 20170417, end: 20170424
  2. PACLITAXEL ALBUMIN BOUND [Suspect]
     Active Substance: PACLITAXEL
     Indication: PANCREATIC CARCINOMA
     Dosage: OTHER FREQUENCY:DAYS 1, 8, 15;?
     Route: 042
     Dates: start: 20170417, end: 20170424

REACTIONS (2)
  - Cellulitis [None]
  - Staphylococcus test positive [None]

NARRATIVE: CASE EVENT DATE: 20170426
